FAERS Safety Report 24301789 (Version 1)
Quarter: 2024Q3

REPORT INFORMATION
  Report Type: Spontaneous
  Country: US (occurrence: US)
  Receive Date: 20240910
  Receipt Date: 20240910
  Transmission Date: 20241016
  Serious: Yes (Death, Other)
  Sender: STRIDES
  Company Number: US-STRIDES ARCOLAB LIMITED-2024SP011373

PATIENT
  Age: 65 Year
  Sex: Male

DRUGS (12)
  1. ETOPOSIDE [Suspect]
     Active Substance: ETOPOSIDE
     Indication: Neoplasm malignant
     Dosage: UNK, CYCLICAL
     Route: 065
  2. PREDNISOLONE [Suspect]
     Active Substance: PREDNISOLONE
     Indication: Neoplasm malignant
     Dosage: UNK
     Route: 065
  3. PREDNISOLONE [Suspect]
     Active Substance: PREDNISOLONE
     Indication: Scleroderma renal crisis
     Dosage: UNK
     Route: 065
  4. PREDNISOLONE [Suspect]
     Active Substance: PREDNISOLONE
     Dosage: UNK (GRADUALLY TAPERED OFF)
     Route: 065
  5. MYCOPHENOLATE MOFETIL [Suspect]
     Active Substance: MYCOPHENOLATE MOFETIL
     Indication: Scleroderma renal crisis
     Dosage: UNK
     Route: 065
  6. CAPTOPRIL [Suspect]
     Active Substance: CAPTOPRIL
     Indication: Hypertension
     Dosage: UNK
     Route: 065
  7. CAPTOPRIL [Suspect]
     Active Substance: CAPTOPRIL
     Indication: Thrombocytopenia
  8. CAPTOPRIL [Suspect]
     Active Substance: CAPTOPRIL
     Indication: Haemolytic anaemia
  9. CARBOPLATIN [Suspect]
     Active Substance: CARBOPLATIN
     Indication: Neoplasm malignant
     Dosage: UNK, CYCLICAL
     Route: 065
  10. DENOSUMAB [Suspect]
     Active Substance: DENOSUMAB
     Indication: Neoplasm malignant
     Dosage: UNK, CYCLICAL
     Route: 065
  11. PEMBROLIZUMAB [Suspect]
     Active Substance: PEMBROLIZUMAB
     Indication: Neoplasm malignant
     Dosage: UNK, CYCLICAL
     Route: 065
  12. INFLIXIMAB [Suspect]
     Active Substance: INFLIXIMAB
     Indication: Scleroderma renal crisis
     Dosage: UNK (SNGLE DOSE)
     Route: 065

REACTIONS (5)
  - Drug ineffective [Fatal]
  - Malignant neoplasm progression [Fatal]
  - Metastases to central nervous system [Fatal]
  - Therapy non-responder [Unknown]
  - Off label use [Unknown]
